FAERS Safety Report 16383806 (Version 1)
Quarter: 2019Q2

REPORT INFORMATION
  Report Type: Spontaneous
  Country: US (occurrence: US)
  Receive Date: 20190531
  Receipt Date: 20190531
  Transmission Date: 20190711
  Serious: No
  Sender: FDA-Public Use
  Company Number: None

PATIENT
  Age: 37 Year
  Sex: Female
  Weight: 63 kg

DRUGS (4)
  1. VITAMIN D [Concomitant]
     Active Substance: VITAMIN D NOS
  2. VITAMIN B12 [Concomitant]
     Active Substance: CYANOCOBALAMIN
  3. NEURONTIN 300MG TID [Concomitant]
  4. TECFIDERA [Suspect]
     Active Substance: DIMETHYL FUMARATE
     Indication: RELAPSING-REMITTING MULTIPLE SCLEROSIS
     Dosage: ?          QUANTITY:46 CAPSULE(S);?
     Route: 048
     Dates: start: 20190506, end: 20190529

REACTIONS (5)
  - Abdominal distension [None]
  - Diarrhoea [None]
  - Gastrointestinal pain [None]
  - Impaired work ability [None]
  - Insomnia [None]

NARRATIVE: CASE EVENT DATE: 20190524
